FAERS Safety Report 9140829 (Version 1)
Quarter: 2013Q1

REPORT INFORMATION
  Report Type: Report from Study
  Country: US (occurrence: US)
  Receive Date: 20130305
  Receipt Date: 20130305
  Transmission Date: 20140127
  Serious: Yes (Death)
  Sender: FDA-Public Use
  Company Number: US-ASTRAZENECA-2013SE14294

PATIENT
  Age: 60 Year
  Sex: Female

DRUGS (1)
  1. SYMBICORT  PMDI [Suspect]
     Route: 055

REACTIONS (1)
  - Death [Fatal]
